FAERS Safety Report 17951341 (Version 2)
Quarter: 2020Q3

REPORT INFORMATION
  Report Type: Spontaneous
  Country: CN (occurrence: CN)
  Receive Date: 20200626
  Receipt Date: 20200708
  Transmission Date: 20201103
  Serious: Yes (Hospitalization, Other)
  Sender: FDA-Public Use
  Company Number: CN-SA-2020SA153687

PATIENT

DRUGS (2)
  1. AMARYL [Suspect]
     Active Substance: GLIMEPIRIDE
     Dosage: UNKNOWN
     Route: 048
  2. TALCID [Concomitant]
     Active Substance: HYDROTALCITE
     Indication: PANCREATITIS
     Route: 065

REACTIONS (5)
  - Rheumatic disorder [Unknown]
  - Blood glucose increased [Unknown]
  - Diabetes mellitus inadequate control [Recovering/Resolving]
  - Drug ineffective [Unknown]
  - Suspected counterfeit product [Unknown]

NARRATIVE: CASE EVENT DATE: 202004
